FAERS Safety Report 20201946 (Version 1)
Quarter: 2021Q4

REPORT INFORMATION
  Report Type: Report from Study
  Country: US (occurrence: US)
  Receive Date: 20211217
  Receipt Date: 20211217
  Transmission Date: 20220303
  Serious: Yes (Hospitalization)
  Sender: FDA-Public Use
  Company Number: US-PFIZER INC-202101771398

PATIENT
  Age: 58 Year
  Sex: Male

DRUGS (2)
  1. BRAFTOVI [Suspect]
     Active Substance: ENCORAFENIB
     Indication: Metastatic malignant melanoma
     Dosage: 450 MG, DAILY
     Route: 048
  2. MEKTOVI [Suspect]
     Active Substance: BINIMETINIB
     Indication: Metastatic malignant melanoma
     Dosage: 45 MG, 2X/DAY
     Route: 048

REACTIONS (5)
  - Memory impairment [Unknown]
  - Gait disturbance [Unknown]
  - Headache [Unknown]
  - Muscular weakness [Unknown]
  - Fatigue [Unknown]

NARRATIVE: CASE EVENT DATE: 20211209
